FAERS Safety Report 18559186 (Version 2)
Quarter: 2021Q2

REPORT INFORMATION
  Report Type: Spontaneous
  Country: FR (occurrence: FR)
  Receive Date: 20201130
  Receipt Date: 20210415
  Transmission Date: 20210717
  Serious: Yes (Life-Threatening, Hospitalization)
  Sender: FDA-Public Use
  Company Number: FR-MYLANLABS-2020M1097184

PATIENT
  Age: 30 Year
  Sex: Male

DRUGS (7)
  1. MIDAZOLAM. [Suspect]
     Active Substance: MIDAZOLAM
     Indication: STATUS EPILEPTICUS
     Dosage: TITRATION BOLUSES FOR BURST EEG PATTERN, BOLUS
  2. VALPROIC ACID. [Suspect]
     Active Substance: VALPROIC ACID
     Indication: STATUS EPILEPTICUS
     Dosage: 2500 MILLIGRAM, LOADING DOSE
     Route: 065
  3. PHENYTOIN. [Suspect]
     Active Substance: PHENYTOIN
     Indication: STATUS EPILEPTICUS
     Dosage: 1500 MILLIGRAM, LOADING BOLUS DOSE
  4. LEVETIRACETAM. [Suspect]
     Active Substance: LEVETIRACETAM
     Indication: STATUS EPILEPTICUS
     Dosage: 1000 MILLIGRAM, LOADING DOSE
     Route: 065
  5. TIAGABINE [Suspect]
     Active Substance: TIAGABINE
     Indication: ANXIETY
     Dosage: UNK
     Route: 048
  6. PROPOFOL. [Suspect]
     Active Substance: PROPOFOL
     Indication: STATUS EPILEPTICUS
     Dosage: TITRATION BOLUSES FOR SUPPRESSION OF BURST EEG PATTERN, BOLUS
  7. CLONAZEPAM. [Suspect]
     Active Substance: CLONAZEPAM
     Indication: STATUS EPILEPTICUS
     Dosage: 1 MILLIGRAM, 2 BOLUS DOSES DURING TRANSPORTATION TO HOSPITAL, BOLUS

REACTIONS (5)
  - Status epilepticus [Recovered/Resolved]
  - Drug withdrawal convulsions [Recovered/Resolved]
  - Condition aggravated [Recovered/Resolved]
  - Generalised tonic-clonic seizure [Recovered/Resolved]
  - Drug ineffective [Recovered/Resolved]
